FAERS Safety Report 8803815 (Version 2)
Quarter: 2012Q4

REPORT INFORMATION
  Report Type: 
  Country: US (occurrence: US)
  Receive Date: 20120924
  Receipt Date: 20121107
  Transmission Date: 20130627
  Serious: No
  Sender: FDA-Public Use
  Company Number: US-PFIZER INC-2012232554

PATIENT
  Age: 13 Year
  Sex: Female
  Weight: 54.4 kg

DRUGS (1)
  1. DEPO-PROVERA [Suspect]
     Indication: PROPHYLAXIS
     Dosage: UNK
     Route: 058
     Dates: start: 20120913

REACTIONS (5)
  - Urticaria [Unknown]
  - Headache [Recovering/Resolving]
  - Nasopharyngitis [Recovering/Resolving]
  - Pruritus [Unknown]
  - Drug administration error [Unknown]
